FAERS Safety Report 11754569 (Version 1)
Quarter: 2015Q4

REPORT INFORMATION
  Report Type: Spontaneous
  Country: US (occurrence: None)
  Receive Date: 20151118
  Receipt Date: 20151118
  Transmission Date: 20160304
  Serious: Yes (Hospitalization)
  Sender: FDA-Public Use
  Company Number: None

PATIENT
  Age: 71 Year
  Sex: Male
  Weight: 107 kg

DRUGS (32)
  1. VALSARTAN. [Concomitant]
     Active Substance: VALSARTAN
  2. MIDAZOLAM [Concomitant]
     Active Substance: MIDAZOLAM\MIDAZOLAM HYDROCHLORIDE
  3. NOREPINEPHRINE [Concomitant]
     Active Substance: NOREPINEPHRINE\NOREPINEPHRINE BITARTRATE
  4. GABAPENTIN. [Concomitant]
     Active Substance: GABAPENTIN
  5. INSULIN [Concomitant]
     Active Substance: INSULIN NOS
  6. OXYCODONE [Concomitant]
     Active Substance: OXYCODONE
  7. AMITRIPTYLINE [Concomitant]
     Active Substance: AMITRIPTYLINE
  8. ACETAMINOPHEN. [Concomitant]
     Active Substance: ACETAMINOPHEN
  9. AMLODIPINE [Concomitant]
     Active Substance: AMLODIPINE BESYLATE
  10. CEFEPIME [Concomitant]
     Active Substance: CEFEPIME HYDROCHLORIDE
  11. METRONIDAZOLE. [Concomitant]
     Active Substance: METRONIDAZOLE
  12. CISATRACURIUM. [Concomitant]
     Active Substance: CISATRACURIUM
  13. ONDANSETRON [Concomitant]
     Active Substance: ONDANSETRON
  14. FUROSEMIDE. [Concomitant]
     Active Substance: FUROSEMIDE
  15. HEPARIN [Concomitant]
     Active Substance: HEPARIN SODIUM
  16. CARVEDILOL. [Concomitant]
     Active Substance: CARVEDILOL
  17. NICARDIPINE [Concomitant]
     Active Substance: NICARDIPINE
  18. PHENYLEPHRINE [Concomitant]
     Active Substance: PHENYLEPHRINE\PHENYLEPHRINE HYDROCHLORIDE
  19. SIMVASTATIN. [Concomitant]
     Active Substance: SIMVASTATIN
  20. FENTANYL. [Concomitant]
     Active Substance: FENTANYL
  21. ERGOCALCIFEROL. [Concomitant]
     Active Substance: ERGOCALCIFEROL
  22. LEVOTHYROXINE. [Concomitant]
     Active Substance: LEVOTHYROXINE
  23. OXYBUTYNIN [Concomitant]
     Active Substance: OXYBUTYNIN
  24. LEVETIRACETAM. [Suspect]
     Active Substance: LEVETIRACETAM
     Indication: SEIZURE
     Route: 042
     Dates: start: 20151103, end: 20151105
  25. PROPOFOL. [Suspect]
     Active Substance: PROPOFOL
     Indication: SEDATION
     Dosage: CONTINUOUS INFUSIO?USAGE ALSO 11/3 TO 11/4; SEDATION
     Route: 042
     Dates: start: 20151029, end: 20151030
  26. LACOSAMIDE [Concomitant]
     Active Substance: LACOSAMIDE
  27. HYDRALAZINE [Concomitant]
     Active Substance: HYDRALAZINE HYDROCHLORIDE
  28. ALBUMIN [Concomitant]
     Active Substance: ALBUMIN (HUMAN)
  29. ASPIRIN. [Concomitant]
     Active Substance: ASPIRIN
  30. DOCUSATE [Concomitant]
     Active Substance: DOCUSATE
  31. FAMOTIDINE. [Concomitant]
     Active Substance: FAMOTIDINE
  32. SENNA [Concomitant]
     Active Substance: SENNA LEAF\SENNOSIDES\SENNOSIDES A AND B

REACTIONS (6)
  - Convulsive threshold lowered [None]
  - Creatinine renal clearance decreased [None]
  - Lipase increased [None]
  - Cholelithiasis [None]
  - Nervous system disorder [None]
  - Electroencephalogram abnormal [None]

NARRATIVE: CASE EVENT DATE: 20151105
